FAERS Safety Report 22916872 (Version 4)
Quarter: 2023Q4

REPORT INFORMATION
  Report Type: Other
  Country: US (occurrence: US)
  Receive Date: 20230907
  Receipt Date: 20231225
  Transmission Date: 20240110
  Serious: Yes (Other)
  Sender: FDA-Public Use
  Company Number: US-TRAVERE-2023TVT00312

PATIENT
  Age: 34 Year
  Sex: Female
  Weight: 61.46 kg

DRUGS (19)
  1. FILSPARI [Suspect]
     Active Substance: SPARSENTAN
     Indication: Nephrolithiasis
     Dosage: 400 MG
     Route: 048
     Dates: start: 20230518, end: 202308
  2. FILSPARI [Suspect]
     Active Substance: SPARSENTAN
     Indication: Ureterolithiasis
     Dosage: 400 MG
     Route: 048
  3. FILSPARI [Suspect]
     Active Substance: SPARSENTAN
     Indication: IgA nephropathy
  4. LEXAPRO [Concomitant]
     Active Substance: ESCITALOPRAM OXALATE
  5. LASIX [Concomitant]
     Active Substance: FUROSEMIDE
  6. FARXIGA [Concomitant]
     Active Substance: DAPAGLIFLOZIN PROPANEDIOL
  7. MAGNESIUM OXIDE [Concomitant]
     Active Substance: MAGNESIUM OXIDE
  8. POTASSIUM CHLORIDE [Concomitant]
     Active Substance: POTASSIUM CHLORIDE
  9. CRESTOR [Concomitant]
     Active Substance: ROSUVASTATIN CALCIUM
  10. VYVANSE [Concomitant]
     Active Substance: LISDEXAMFETAMINE DIMESYLATE
  11. TOPAMAX [Concomitant]
     Active Substance: TOPIRAMATE
  12. FISH OIL-OMEGA-3-VIT D [Concomitant]
  13. LEVOTHYROXINE SODIUM 100 MCG TABLET [Concomitant]
  14. ASMANEX 220MCG (60) AER POW BA [Concomitant]
  15. MONTELUKAST SODIUM [Concomitant]
     Active Substance: MONTELUKAST SODIUM
  16. ALBUTEROL SULFATE HFA 90 MCG HFA AER AD [Concomitant]
  17. ONDANSETRON ODT 4 MG TAB RAPDIS [Concomitant]
  18. ESCITALOPRAM OXALATE [Concomitant]
     Active Substance: ESCITALOPRAM OXALATE
  19. ROSUVASTATIN CALCIUM [Concomitant]
     Active Substance: ROSUVASTATIN CALCIUM

REACTIONS (7)
  - Abdominal hernia [None]
  - Asthma [None]
  - Hypotension [Unknown]
  - Protein urine [None]
  - Abdominal distension [None]
  - Abdominal mass [None]
  - Liver function test increased [None]

NARRATIVE: CASE EVENT DATE: 20230801
